FAERS Safety Report 4988391-4 (Version None)
Quarter: 2006Q2

REPORT INFORMATION
  Report Type: 
  Country: None (occurrence: None)
  Receive Date: 20060502
  Receipt Date: 20060424
  Transmission Date: 20061013
  Serious: Yes (Hospitalization)
  Sender: FDA-Public Use
  Company Number: FR-AVENTIS-200611530FR

PATIENT
  Age: 90 Year
  Sex: Female

DRUGS (9)
  1. PIRILENE [Suspect]
     Indication: POLYSEROSITIS
     Route: 048
     Dates: start: 20051227, end: 20060226
  2. PIRILENE [Suspect]
     Indication: PYREXIA
     Route: 048
     Dates: start: 20051227, end: 20060226
  3. RIFADIN [Suspect]
     Indication: POLYSEROSITIS
     Route: 048
     Dates: start: 20051227, end: 20060314
  4. RIFADIN [Suspect]
     Indication: PYREXIA
     Route: 048
     Dates: start: 20051227, end: 20060314
  5. MYAMBUTOL [Suspect]
     Indication: POLYSEROSITIS
     Route: 048
     Dates: start: 20051227, end: 20060226
  6. MYAMBUTOL [Suspect]
     Indication: PYREXIA
     Route: 048
     Dates: start: 20051227, end: 20060226
  7. RIMIFON [Suspect]
     Indication: POLYSEROSITIS
     Route: 048
     Dates: start: 20051227, end: 20060314
  8. RIMIFON [Suspect]
     Indication: PYREXIA
     Route: 048
     Dates: start: 20051227, end: 20060314
  9. REMICADE [Concomitant]
     Indication: CROHN'S DISEASE
     Dosage: DOSE: 300 PER CYCLE
     Route: 042
     Dates: start: 20040901

REACTIONS (5)
  - DERMATITIS EXFOLIATIVE [None]
  - EOSINOPHILIA [None]
  - MONONUCLEOSIS SYNDROME [None]
  - PRURIGO [None]
  - RASH PRURITIC [None]
